FAERS Safety Report 6102887-3 (Version None)
Quarter: 2009Q1

REPORT INFORMATION
  Report Type: 
  Country: None (occurrence: None)
  Receive Date: 20090303
  Receipt Date: 20090303
  Transmission Date: 20090719
  Serious: Yes (Hospitalization, Disabling)
  Sender: FDA-Public Use
  Company Number: None

PATIENT
  Age: 63 Year
  Sex: Male
  Weight: 89.3586 kg

DRUGS (2)
  1. ZOCOR [Suspect]
     Indication: CORONARY ARTERY DISEASE
     Dates: start: 20090201, end: 20090223
  2. ZOCOR [Suspect]
     Indication: HYPERLIPIDAEMIA
     Dates: start: 20090201, end: 20090223

REACTIONS (3)
  - CHROMATURIA [None]
  - MUSCULOSKELETAL STIFFNESS [None]
  - MYALGIA [None]
